FAERS Safety Report 8087381-5 (Version None)
Quarter: 2012Q1

REPORT INFORMATION
  Report Type: 
  Country: None (occurrence: None)
  Receive Date: 20120128
  Receipt Date: 20110506
  Transmission Date: 20120608
  Serious: No
  Sender: FDA-Public Use
  Company Number: US-ABBOTT-11P-163-0724324-00

PATIENT
  Sex: Male
  Weight: 99.88 kg

DRUGS (3)
  1. OMEPRAZOLE [Concomitant]
     Indication: PRODUCT USED FOR UNKNOWN INDICATION
  2. ZOMIG [Concomitant]
     Indication: PRODUCT USED FOR UNKNOWN INDICATION
  3. HUMIRA [Suspect]
     Indication: PSORIASIS
     Route: 058
     Dates: start: 20110103, end: 20110421

REACTIONS (2)
  - PLATELET COUNT DECREASED [None]
  - ASPARTATE AMINOTRANSFERASE INCREASED [None]
